FAERS Safety Report 9132054 (Version 1)
Quarter: 2013Q1

REPORT INFORMATION
  Report Type: Spontaneous
  Country: DE (occurrence: DE)
  Receive Date: 20130301
  Receipt Date: 20130301
  Transmission Date: 20140127
  Serious: Yes (Hospitalization)
  Sender: FDA-Public Use
  Company Number: DE-ELI_LILLY_AND_COMPANY-DE201302007145

PATIENT
  Age: 8 Year
  Sex: Male
  Weight: 37 kg

DRUGS (8)
  1. STRATTERA [Suspect]
     Indication: ATTENTION DEFICIT/HYPERACTIVITY DISORDER
     Dosage: 18 MG, QD
     Route: 048
     Dates: start: 20120410, end: 20120416
  2. STRATTERA [Suspect]
     Dosage: 25 MG, QD
     Route: 048
     Dates: start: 20120417, end: 20120423
  3. STRATTERA [Suspect]
     Dosage: 40 MG, QD
     Route: 048
     Dates: start: 20120424, end: 20120511
  4. STRATTERA [Suspect]
     Dosage: 50 MG, QD
     Route: 048
     Dates: start: 20120512, end: 20120514
  5. STRATTERA [Suspect]
     Dosage: 25 MG, QD
     Route: 048
     Dates: start: 20120515, end: 20120518
  6. METHYLPHENIDATE HYDROCHLORIDE [Concomitant]
     Dosage: 1 DF, UNKNOWN
     Dates: start: 20120404, end: 20120424
  7. METHYLPHENIDATE HYDROCHLORIDE [Concomitant]
     Dosage: 1 DF, UNKNOWN
     Route: 048
     Dates: start: 20120425, end: 20120515
  8. METHYLPHENIDATE HYDROCHLORIDE [Concomitant]
     Dosage: 40 MG, QD
     Route: 048
     Dates: start: 20120516

REACTIONS (3)
  - Abnormal behaviour [Recovered/Resolved]
  - Restlessness [Recovered/Resolved]
  - Aggression [Recovered/Resolved]
